FAERS Safety Report 25392260 (Version 1)
Quarter: 2025Q2

REPORT INFORMATION
  Report Type: Spontaneous
  Country: US (occurrence: US)
  Receive Date: 20250603
  Receipt Date: 20250603
  Transmission Date: 20250717
  Serious: No
  Sender: SANOFI AVENTIS
  Company Number: US-SA-2025SA155684

PATIENT
  Sex: Female
  Weight: 104.55 kg

DRUGS (11)
  1. DUPIXENT [Suspect]
     Active Substance: DUPILUMAB
     Indication: Menopausal disorder
     Dosage: 300 MG, QOW
     Route: 058
  2. DUPIXENT [Suspect]
     Active Substance: DUPILUMAB
     Indication: Depression
  3. DUPIXENT [Suspect]
     Active Substance: DUPILUMAB
     Indication: Hyperlipidaemia
  4. DUPIXENT [Suspect]
     Active Substance: DUPILUMAB
     Indication: Asthma
  5. DUPIXENT [Suspect]
     Active Substance: DUPILUMAB
     Indication: Anxiety disorder
  6. DUPIXENT [Suspect]
     Active Substance: DUPILUMAB
     Indication: Nasal polyps
  7. ADVAIR HFA [Concomitant]
     Active Substance: FLUTICASONE PROPIONATE\SALMETEROL XINAFOATE
  8. MONTELUKAST SODIUM [Concomitant]
     Active Substance: MONTELUKAST SODIUM
  9. MAGNESIUM [Concomitant]
     Active Substance: MAGNESIUM
  10. VITAMIN D3 [Concomitant]
     Active Substance: CHOLECALCIFEROL
  11. VITAMINS NOS [Concomitant]
     Active Substance: VITAMINS

REACTIONS (3)
  - Bronchitis [Unknown]
  - Cough [Unknown]
  - Product use in unapproved indication [Unknown]
